FAERS Safety Report 14942906 (Version 2)
Quarter: 2018Q2

REPORT INFORMATION
  Report Type: Report from Study
  Country: FR (occurrence: FR)
  Receive Date: 20180528
  Receipt Date: 20180531
  Transmission Date: 20180711
  Serious: Yes (Life-Threatening, Hospitalization, Other)
  Sender: FDA-Public Use
  Company Number: FR-VIIV HEALTHCARE LIMITED-FR2018GSK093319

PATIENT
  Sex: Male
  Weight: 70 kg

DRUGS (3)
  1. TIVICAY [Suspect]
     Active Substance: DOLUTEGRAVIR SODIUM
     Indication: HIV INFECTION
     Dosage: 50 MG, BID
     Dates: start: 20140307
  2. EDURANT [Concomitant]
     Active Substance: RILPIVIRINE HYDROCHLORIDE
     Indication: HIV INFECTION
  3. CELSENTRI [Concomitant]
     Active Substance: MARAVIROC
     Indication: HIV INFECTION

REACTIONS (2)
  - Bronchopneumopathy [Recovered/Resolved]
  - Carotid artery dissection [Recovered/Resolved]

NARRATIVE: CASE EVENT DATE: 20160116
